FAERS Safety Report 5504493-8 (Version None)
Quarter: 2007Q4

REPORT INFORMATION
  Report Type: 
  Country: None (occurrence: None)
  Receive Date: 20071101
  Receipt Date: 20071024
  Transmission Date: 20080405
  Serious: Yes (Hospitalization, Other)
  Sender: FDA-Public Use
  Company Number: BR-GILEAD-2007-0013987

PATIENT
  Sex: Female

DRUGS (2)
  1. AMBRISENTAN [Suspect]
     Indication: PULMONARY HYPERTENSION
     Dates: start: 20050822
  2. COUMADIN [Concomitant]
     Dates: start: 20050808, end: 20070922

REACTIONS (1)
  - CEREBROVASCULAR ACCIDENT [None]
